FAERS Safety Report 8395536-5 (Version None)
Quarter: 2012Q2

REPORT INFORMATION
  Report Type: 
  Country: None (occurrence: None)
  Receive Date: 20120530
  Receipt Date: 20110628
  Transmission Date: 20120825
  Serious: No
  Sender: FDA-Public Use
  Company Number: US-GLAXOSMITHKLINE-A0933445A

PATIENT
  Age: 81 Year
  Sex: Female

DRUGS (7)
  1. MINERAL TAB [Concomitant]
  2. UNSPECIFIED MEDICATION [Concomitant]
     Indication: OSTEOPOROSIS
  3. VENTOLIN HFA [Concomitant]
  4. VENTOLIN [Suspect]
     Indication: ASTHMA
     Dosage: 1PUFF TWICE PER DAY
     Route: 055
  5. ORENCIA [Concomitant]
  6. VITAMIN TAB [Concomitant]
  7. GABAPENTIN [Concomitant]

REACTIONS (2)
  - PRODUCT QUALITY ISSUE [None]
  - DRUG INEFFECTIVE [None]
